FAERS Safety Report 10682705 (Version 1)
Quarter: 2014Q4

REPORT INFORMATION
  Report Type: Spontaneous
  Country: US (occurrence: None)
  Receive Date: 20141209
  Receipt Date: 20141209
  Transmission Date: 20150529
  Serious: Yes (Hospitalization)
  Sender: FDA-Public Use
  Company Number: 401761

PATIENT
  Age: 41 Year
  Sex: Male
  Weight: 70.3 kg

DRUGS (1)
  1. NOVOLOG [Suspect]
     Active Substance: INSULIN ASPART
     Indication: TYPE 1 DIABETES MELLITUS
     Dosage: SLIDING SCALE
     Route: 058
     Dates: start: 2008, end: 20140218

REACTIONS (3)
  - Drug ineffective [None]
  - Blood glucose increased [None]
  - Product quality issue [None]

NARRATIVE: CASE EVENT DATE: 20140217
